FAERS Safety Report 16297391 (Version 1)
Quarter: 2019Q2

REPORT INFORMATION
  Report Type: Spontaneous
  Country: IT (occurrence: IT)
  Receive Date: 20190510
  Receipt Date: 20190510
  Transmission Date: 20190711
  Serious: Yes (Other)
  Sender: FDA-Public Use
  Company Number: IT-AUROBINDO-AUR-APL-2019-025037

PATIENT

DRUGS (2)
  1. PANTOPRAZOLE [Suspect]
     Active Substance: PANTOPRAZOLE
     Indication: PERICARDITIS
     Dosage: 40 MILLIGRAM, BID
     Route: 065
  2. COLCHICINE. [Suspect]
     Active Substance: COLCHICINE
     Indication: PERICARDITIS
     Dosage: 1 MILLIGRAM
     Route: 065

REACTIONS (5)
  - Product use in unapproved indication [Unknown]
  - Disease recurrence [Unknown]
  - Exposure during pregnancy [Unknown]
  - Pericarditis [Unknown]
  - Maternal exposure during breast feeding [Unknown]
